FAERS Safety Report 10393495 (Version 2)
Quarter: 2014Q3

REPORT INFORMATION
  Report Type: Spontaneous
  Country: BR (occurrence: BR)
  Receive Date: 20140819
  Receipt Date: 20140819
  Transmission Date: 20150326
  Serious: Yes (Death)
  Sender: FDA-Public Use
  Company Number: BR-PFIZER INC-2014177243

PATIENT
  Age: 47 Year
  Sex: Female
  Weight: 68 kg

DRUGS (3)
  1. SUTENT [Suspect]
     Active Substance: SUNITINIB MALATE
     Indication: PANCREATIC NEUROENDOCRINE TUMOUR METASTATIC
     Dosage: 37.5 MG, UNK (1 CAPSULE OF 37.5 MG)
     Route: 048
     Dates: start: 20140321
  2. SUTENT [Suspect]
     Active Substance: SUNITINIB MALATE
     Dosage: 25 MG, UNK
     Dates: start: 20140524
  3. SUTENT [Suspect]
     Active Substance: SUNITINIB MALATE
     Dosage: 25 MG, CONTINUOUSLY (DAILY)
     Route: 048
     Dates: start: 20140424

REACTIONS (10)
  - Blister [Unknown]
  - Hypersensitivity [Unknown]
  - Pruritus [Unknown]
  - Tongue disorder [Unknown]
  - Hypophagia [Unknown]
  - Skin burning sensation [Unknown]
  - Death [Fatal]
  - Pain of skin [Unknown]
  - Rash [Unknown]
  - Skin discolouration [Unknown]

NARRATIVE: CASE EVENT DATE: 2014
